FAERS Safety Report 16282452 (Version 1)
Quarter: 2019Q2

REPORT INFORMATION
  Report Type: Spontaneous
  Country: JP (occurrence: JP)
  Receive Date: 20190507
  Receipt Date: 20190507
  Transmission Date: 20190711
  Serious: Yes (Other)
  Sender: FDA-Public Use
  Company Number: JP-BAUSCH-BL-2019-012912

PATIENT
  Age: 62 Year
  Sex: Male

DRUGS (4)
  1. ADENOSINE TRIPHOSPHATE DISODIUM HYDRATE [Concomitant]
     Indication: DEAFNESS NEUROSENSORY
  2. TEPRENONE [Concomitant]
     Active Substance: TEPRENONE
     Indication: DEAFNESS NEUROSENSORY
  3. PREDNISOLONE. [Suspect]
     Active Substance: PREDNISOLONE
     Indication: DEAFNESS NEUROSENSORY
     Route: 048
  4. METHYLCOBALAMIN. [Concomitant]
     Active Substance: METHYLCOBALAMIN
     Indication: DEAFNESS NEUROSENSORY

REACTIONS (2)
  - Rash [Recovered/Resolved]
  - Drug eruption [Recovered/Resolved]
